FAERS Safety Report 10168734 (Version 2)
Quarter: 2014Q2

REPORT INFORMATION
  Report Type: Spontaneous
  Country: DE (occurrence: None)
  Receive Date: 20140509
  Receipt Date: 20140519
  Transmission Date: 20141212
  Serious: Yes (Other)
  Sender: FDA-Public Use
  Company Number: 7290515

PATIENT
  Sex: Female

DRUGS (1)
  1. EUTHYROX [Suspect]
     Indication: POST PROCEDURAL HYPOTHYROIDISM
     Dosage: 75 MCG/87.5 MCG ALTERNATING ONCE A DAY ORAL
     Route: 048

REACTIONS (7)
  - Angina pectoris [None]
  - Cardiac disorder [None]
  - Nervousness [None]
  - Inappropriate schedule of drug administration [None]
  - Hyperthyroidism [None]
  - Hypothyroidism [None]
  - Anxiety [None]
